FAERS Safety Report 8843586 (Version 9)
Quarter: 2014Q4

REPORT INFORMATION
  Report Type: Spontaneous
  Country: US (occurrence: US)
  Receive Date: 20121016
  Receipt Date: 20141217
  Transmission Date: 20150529
  Serious: Yes (Death, Life-Threatening, Hospitalization, Disabling, Other)
  Sender: FDA-Public Use
  Company Number: US-009507513-1210USA005874

PATIENT
  Sex: Female
  Weight: 95.24 kg

DRUGS (3)
  1. BYETTA [Suspect]
     Active Substance: EXENATIDE
     Indication: TYPE 2 DIABETES MELLITUS
     Dosage: 10 MICROGRAM, BID
     Dates: start: 20060125, end: 20060427
  2. JANUVIA [Suspect]
     Active Substance: SITAGLIPTIN PHOSPHATE
     Indication: TYPE 2 DIABETES MELLITUS
     Dosage: 100 MG, QD
     Route: 048
     Dates: start: 20080407
  3. BYETTA [Suspect]
     Active Substance: EXENATIDE
     Dosage: 5 MCG/0.02ML
     Dates: start: 20060626, end: 20060726

REACTIONS (49)
  - Hepatitis [Unknown]
  - Hypoglycaemia [Unknown]
  - Diabetic neuropathy [Unknown]
  - Bile duct obstruction [Unknown]
  - Wound dehiscence [Unknown]
  - Depression [Unknown]
  - Pyrexia [Recovered/Resolved]
  - Lymphadenectomy [Unknown]
  - Pancreatitis acute [Unknown]
  - Hypercholesterolaemia [Recovered/Resolved]
  - Hypothyroidism [Unknown]
  - Diabetes mellitus inadequate control [Unknown]
  - Somnolence [Unknown]
  - Stress at work [Unknown]
  - Pancreaticoduodenectomy [Unknown]
  - Gastritis [Unknown]
  - Snoring [Recovered/Resolved]
  - Muscle atrophy [Unknown]
  - Anaemia [Unknown]
  - Radiotherapy [Unknown]
  - Cough [Unknown]
  - Adenocarcinoma pancreas [Fatal]
  - Urinary tract infection [Unknown]
  - Hypokalaemia [Unknown]
  - Pancreatitis chronic [Not Recovered/Not Resolved]
  - Flank pain [Not Recovered/Not Resolved]
  - Muscular weakness [Unknown]
  - Flatulence [Unknown]
  - Hypertension [Recovered/Resolved]
  - Hiatus hernia [Unknown]
  - Metastatic neoplasm [Unknown]
  - Bile duct stent insertion [Unknown]
  - Pleural effusion [Unknown]
  - Anxiety [Not Recovered/Not Resolved]
  - Pyrexia [Unknown]
  - Anxiety [Not Recovered/Not Resolved]
  - Explorative laparotomy [Unknown]
  - Muscular weakness [Unknown]
  - Pelvic venous thrombosis [Recovered/Resolved]
  - Escherichia infection [Unknown]
  - Musculoskeletal discomfort [Unknown]
  - Adverse drug reaction [Unknown]
  - Major depression [Unknown]
  - Metastases to liver [Unknown]
  - Metastases to abdominal cavity [Unknown]
  - Barrett^s oesophagus [Unknown]
  - Ecchymosis [Recovered/Resolved]
  - Nausea [Unknown]
  - Diarrhoea [Unknown]

NARRATIVE: CASE EVENT DATE: 20080418
